FAERS Safety Report 21054679 (Version 1)
Quarter: 2022Q3

REPORT INFORMATION
  Report Type: Spontaneous
  Country: FR (occurrence: FR)
  Receive Date: 20220707
  Receipt Date: 20220707
  Transmission Date: 20221027
  Serious: Yes (Other)
  Sender: FDA-Public Use
  Company Number: FR-TEVA-2022-FR-2052755

PATIENT
  Age: 33 Year
  Sex: Female

DRUGS (1)
  1. COPAXONE [Suspect]
     Active Substance: GLATIRAMER ACETATE
     Indication: Relapsing-remitting multiple sclerosis
     Dosage: COPAXONE 40 MG/ML
     Route: 065
     Dates: start: 201906

REACTIONS (9)
  - Gestational diabetes [Not Recovered/Not Resolved]
  - Face oedema [Recovered/Resolved]
  - Maternal exposure during pregnancy [Unknown]
  - Pruritus [Recovered/Resolved]
  - Sense of oppression [Recovered/Resolved]
  - Wrong technique in product usage process [Unknown]
  - Hypersensitivity [Recovered/Resolved]
  - Needle fatigue [Not Recovered/Not Resolved]
  - Urticaria [Recovered/Resolved]

NARRATIVE: CASE EVENT DATE: 20210101
